FAERS Safety Report 7000983-X (Version None)
Quarter: 2010Q3

REPORT INFORMATION
  Report Type: 
  Country: None (occurrence: None)
  Receive Date: 20100920
  Receipt Date: 20070925
  Transmission Date: 20110219
  Serious: Yes (Hospitalization, Other)
  Sender: FDA-Public Use
  Company Number: US-ASTRAZENECA-2006UW22099

PATIENT
  Age: 19563 Day
  Sex: Female
  Weight: 94.3 kg

DRUGS (12)
  1. SEROQUEL [Suspect]
     Indication: SCHIZOPHRENIA
     Route: 048
     Dates: start: 20050811, end: 20060911
  2. SEROQUEL [Suspect]
     Indication: DEPRESSION
     Route: 048
     Dates: start: 20050811, end: 20060911
  3. SEROQUEL [Suspect]
     Dosage: 25-50 MG
     Route: 048
     Dates: start: 20050811
  4. SEROQUEL [Suspect]
     Dosage: 25-50 MG
     Route: 048
     Dates: start: 20050811
  5. STELAZINE [Concomitant]
  6. ZYPREXA [Concomitant]
  7. PROMETHAZINE [Concomitant]
     Dosage: 25-50 MG
     Route: 048
     Dates: start: 20051001
  8. LEXAPRO [Concomitant]
     Dosage: 10-20 MG
     Dates: start: 20050811
  9. AMBIEN [Concomitant]
     Dosage: 5-10 MG
     Dates: start: 20021125
  10. METOPROLOL [Concomitant]
     Dosage: 12.5-100 MG
     Route: 048
     Dates: start: 20050811
  11. METFORMIN [Concomitant]
     Dosage: 500-1000 MG
     Route: 048
     Dates: start: 20050811
  12. NABUMETONE [Concomitant]
     Dosage: 500 MG TWO TABLETS IN THE MORNING
     Route: 048
     Dates: start: 20070405

REACTIONS (3)
  - CEREBROVASCULAR ACCIDENT [None]
  - DIABETES MELLITUS [None]
  - TYPE 2 DIABETES MELLITUS [None]
